FAERS Safety Report 7249052-4 (Version None)
Quarter: 2011Q1

REPORT INFORMATION
  Report Type: 
  Country: None (occurrence: None)
  Receive Date: 20110128
  Receipt Date: 20100706
  Transmission Date: 20110831
  Serious: Yes (Hospitalization, Other)
  Sender: FDA-Public Use
  Company Number: US-BAYER-201022770NA

PATIENT
  Sex: Female
  Weight: 69.545 kg

DRUGS (9)
  1. YAZ [Suspect]
     Indication: VAGINAL HAEMORRHAGE
     Dosage: UNK
     Route: 048
     Dates: start: 20080221, end: 20090101
  2. TOPAMAX [Concomitant]
     Dates: start: 20100201
  3. CENTRALLY ACTING SYMPATHOMIMETICS [Concomitant]
     Indication: ATTENTION DEFICIT/HYPERACTIVITY DISORDER
  4. DETROL LA [Concomitant]
  5. YASMIN [Suspect]
     Indication: PREMENSTRUAL SYNDROME
     Route: 048
     Dates: start: 20050415
  6. ANTIDEPRESSANTS [Concomitant]
     Indication: DEPRESSION
  7. YAZ [Suspect]
     Indication: PREMENSTRUAL SYNDROME
  8. TOPAMAX [Concomitant]
     Indication: MIGRAINE
     Dates: start: 20060101, end: 20070101
  9. PREVACID [Concomitant]
     Indication: ABDOMINAL PAIN
     Dosage: 30 MG (DAILY DOSE), ,

REACTIONS (3)
  - HEPATIC NEOPLASM [None]
  - CHOLECYSTITIS CHRONIC [None]
  - BILIARY DYSKINESIA [None]
